FAERS Safety Report 14370013 (Version 1)
Quarter: 2018Q1

REPORT INFORMATION
  Report Type: Report from Study
  Country: None (occurrence: RO)
  Receive Date: 20180110
  Receipt Date: 20180110
  Transmission Date: 20180509
  Serious: Yes (Hospitalization)
  Sender: FDA-Public Use
  Company Number: RO-ABBVIE-18K-135-2214941-00

PATIENT
  Age: 65 Year
  Sex: Female

DRUGS (11)
  1. TENAXUM [Concomitant]
     Active Substance: RILMENIDINE
     Indication: ANGINA PECTORIS
     Route: 048
  2. METOPROLOL. [Concomitant]
     Active Substance: METOPROLOL
     Indication: ANGINA PECTORIS
     Route: 048
  3. TENAXUM [Concomitant]
     Active Substance: RILMENIDINE
     Indication: ISCHAEMIC CARDIOMYOPATHY
  4. LANTUS [Concomitant]
     Active Substance: INSULIN GLARGINE
     Indication: DIABETES MELLITUS
     Route: 058
  5. HUMALOG [Concomitant]
     Active Substance: INSULIN LISPRO
     Indication: DIABETES MELLITUS
     Route: 058
  6. HUMIRA [Suspect]
     Active Substance: ADALIMUMAB
     Indication: RHEUMATOID ARTHRITIS
     Route: 058
     Dates: start: 20170708
  7. ROSUVASTATIN. [Concomitant]
     Active Substance: ROSUVASTATIN
     Indication: ANGINA PECTORIS
     Route: 048
  8. ROSUVASTATIN. [Concomitant]
     Active Substance: ROSUVASTATIN
     Indication: ISCHAEMIC CARDIOMYOPATHY
  9. HUMALOG [Concomitant]
     Active Substance: INSULIN LISPRO
     Indication: ISCHAEMIC CARDIOMYOPATHY
  10. LANTUS [Concomitant]
     Active Substance: INSULIN GLARGINE
     Indication: ISCHAEMIC CARDIOMYOPATHY
  11. METOPROLOL. [Concomitant]
     Active Substance: METOPROLOL
     Indication: ISCHAEMIC CARDIOMYOPATHY

REACTIONS (5)
  - Gastrointestinal motility disorder [Recovered/Resolved]
  - Gallbladder disorder [Recovering/Resolving]
  - Headache [Recovered/Resolved]
  - Lung disorder [Not Recovered/Not Resolved]
  - Vomiting [Recovered/Resolved]

NARRATIVE: CASE EVENT DATE: 201712
